FAERS Safety Report 15322098 (Version 1)
Quarter: 2018Q3

REPORT INFORMATION
  Report Type: Spontaneous
  Country: US (occurrence: US)
  Receive Date: 20180821
  Receipt Date: 20180821
  Transmission Date: 20181010
  Serious: Yes (Life-Threatening)
  Sender: FDA-Public Use
  Company Number: None

PATIENT
  Age: 66 Year
  Sex: Female

DRUGS (2)
  1. CLOPIDOGREL [Suspect]
     Active Substance: CLOPIDOGREL BISULFATE
  2. ASPIRIN. [Suspect]
     Active Substance: ASPIRIN

REACTIONS (9)
  - Laryngeal oedema [None]
  - Bradyarrhythmia [None]
  - Carotid artery stenosis [None]
  - Thalamus haemorrhage [None]
  - Tracheal oedema [None]
  - Intraventricular haemorrhage [None]
  - Post procedural haematoma [None]
  - Hemiparesis [None]
  - Ischaemic stroke [None]
